FAERS Safety Report 5105488-9 (Version None)
Quarter: 2006Q3

REPORT INFORMATION
  Report Type: 
  Country: None (occurrence: None)
  Receive Date: 20060731
  Receipt Date: 20060321
  Transmission Date: 20061208
  Serious: Yes (Hospitalization, Other)
  Sender: FDA-Public Use
  Company Number: US-JNJFOC-20060301439

PATIENT
  Age: 9 Year
  Sex: Male
  Weight: 36.7 kg

DRUGS (3)
  1. RISPERDAL [Suspect]
     Indication: BIPOLAR I DISORDER
     Dosage: 0.5 MG, 2 IN 1 DAY, ORAL
     Route: 048
     Dates: start: 20050913, end: 20051011
  2. DEPAKOTE ER (VALPROATE SEMISODIUM) TABLETS [Concomitant]
  3. DEPAKOTE SPRINKLES (VALPROATE SEMISODIUM) [Concomitant]

REACTIONS (1)
  - PRIAPISM [None]
